FAERS Safety Report 6060378-2 (Version None)
Quarter: 2009Q1

REPORT INFORMATION
  Report Type: 
  Country: None (occurrence: None)
  Receive Date: 20090130
  Receipt Date: 20090130
  Transmission Date: 20090719
  Serious: Yes (Life-Threatening, Hospitalization, Disabling)
  Sender: FDA-Public Use
  Company Number: None

PATIENT
  Sex: Female
  Weight: 49.8957 kg

DRUGS (1)
  1. FOSAMAX [Suspect]
     Indication: OSTEOPOROSIS
     Dosage: 1 PILL DAILY;  1 PILL WEEKLY  (DURATION: 18 MO TO 2 YRS)

REACTIONS (15)
  - ASTHENIA [None]
  - FEEDING TUBE COMPLICATION [None]
  - GASTRIC DISORDER [None]
  - GASTROINTESTINAL PAIN [None]
  - HAEMOGLOBIN DECREASED [None]
  - INTESTINAL FUNCTIONAL DISORDER [None]
  - MALAISE [None]
  - OESOPHAGEAL ADENOCARCINOMA [None]
  - ORAL DISORDER [None]
  - POST PROCEDURAL COMPLICATION [None]
  - POSTOPERATIVE WOUND INFECTION [None]
  - SLEEP DISORDER [None]
  - ULCER [None]
  - WEIGHT DECREASED [None]
  - WEIGHT GAIN POOR [None]
